FAERS Safety Report 21712884 (Version 1)
Quarter: 2022Q4

REPORT INFORMATION
  Report Type: Report from Study
  Country: ES (occurrence: ES)
  Receive Date: 20221212
  Receipt Date: 20221212
  Transmission Date: 20230113
  Serious: Yes (Life-Threatening, Hospitalization)
  Sender: FDA-Public Use
  Company Number: None

PATIENT
  Age: 49 Year
  Sex: Male

DRUGS (5)
  1. TOPIRAMATE [Suspect]
     Active Substance: TOPIRAMATE
     Indication: Product used for unknown indication
     Dosage: 6 GRAM, 1 TOTAL
     Route: 048
     Dates: start: 20220816, end: 20220816
  2. VENLAFAXINE HYDROCHLORIDE [Concomitant]
     Active Substance: VENLAFAXINE HYDROCHLORIDE
     Indication: Depression
     Dosage: 75 MILLIGRAM, QD
     Route: 048
     Dates: start: 20210902
  3. CLORAZEPATE DIPOTASSIUM [Concomitant]
     Active Substance: CLORAZEPATE DIPOTASSIUM
     Indication: Anxiety
     Dosage: 30 MILLIGRAM, QD, 30 CAPSULES
     Route: 048
     Dates: start: 20120508
  4. QUETIAPINE [Concomitant]
     Active Substance: QUETIAPINE
     Indication: Borderline personality disorder
     Dosage: 150 MILLIGRAM, QD
     Route: 048
     Dates: start: 20170830
  5. TOPIRAMATE [Concomitant]
     Active Substance: TOPIRAMATE
     Indication: Borderline personality disorder
     Dosage: 100 MILLIGRAM, QD
     Route: 048
     Dates: start: 20170920, end: 20220816

REACTIONS (2)
  - Depressed level of consciousness [Recovered/Resolved]
  - Intentional overdose [Recovered/Resolved]

NARRATIVE: CASE EVENT DATE: 20220816
